FAERS Safety Report 10206981 (Version 1)
Quarter: 2014Q2

REPORT INFORMATION
  Report Type: Spontaneous
  Country: US (occurrence: None)
  Receive Date: 20140528
  Receipt Date: 20140528
  Transmission Date: 20141212
  Serious: Yes (Life-Threatening)
  Sender: FDA-Public Use
  Company Number: None

PATIENT
  Sex: Female
  Weight: 79.5 kg

DRUGS (17)
  1. RIBAVIRIN [Suspect]
     Indication: HEPATITIS C
     Route: 048
     Dates: start: 20140207, end: 20140313
  2. METFORMIN [Concomitant]
  3. LAMOTRIGINE [Concomitant]
  4. TOPAMAX [Concomitant]
  5. STRATTERA [Concomitant]
  6. CYMBALTA [Concomitant]
  7. ZANTAC [Concomitant]
  8. LORTAB [Concomitant]
  9. CODEINE [Concomitant]
  10. LOVENOX [Concomitant]
  11. BISACODYL [Concomitant]
  12. CLARITIN [Concomitant]
  13. HYDROCHLOROTHIAZIDE [Concomitant]
  14. VITAMIN D3 [Concomitant]
  15. BENZTROPINE [Suspect]
  16. PEGASYS [Suspect]
  17. SOVALDI [Concomitant]

REACTIONS (1)
  - Suicide attempt [None]
